FAERS Safety Report 20327757 (Version 1)
Quarter: 2022Q1

REPORT INFORMATION
  Report Type: Spontaneous
  Country: US (occurrence: US)
  Receive Date: 20220112
  Receipt Date: 20220112
  Transmission Date: 20220423
  Serious: Yes (Other)
  Sender: FDA-Public Use
  Company Number: US-SLATE RUN PHARMACEUTICALS-22US000854

PATIENT

DRUGS (2)
  1. AZITHROMYCIN [Suspect]
     Active Substance: AZITHROMYCIN
     Indication: Preterm premature rupture of membranes
     Dosage: 1 GRAM
  2. PENICILLIN G [Suspect]
     Active Substance: PENICILLIN G
     Indication: Preterm premature rupture of membranes
     Route: 042

REACTIONS (3)
  - Amniotic cavity infection [Unknown]
  - Maternal exposure during pregnancy [Recovered/Resolved]
  - Off label use [Unknown]
